FAERS Safety Report 5811520-7 (Version None)
Quarter: 2008Q3

REPORT INFORMATION
  Report Type: 
  Country: None (occurrence: None)
  Receive Date: 20080714
  Receipt Date: 20080714
  Transmission Date: 20090109
  Serious: Yes (Life-Threatening)
  Sender: FDA-Public Use
  Company Number: None

PATIENT
  Sex: Male

DRUGS (1)
  1. PRIMIDONE [Suspect]
     Indication: EPILEPSY
     Dosage: 250MG BID PO
     Route: 048
     Dates: start: 20080608, end: 20080612

REACTIONS (2)
  - STATUS EPILEPTICUS [None]
  - THERAPEUTIC RESPONSE UNEXPECTED WITH DRUG SUBSTITUTION [None]
